FAERS Safety Report 5831261-X (Version None)
Quarter: 2008Q3

REPORT INFORMATION
  Report Type: 
  Country: None (occurrence: None)
  Receive Date: 20080801
  Receipt Date: 20080722
  Transmission Date: 20090109
  Serious: Yes (Life-Threatening)
  Sender: FDA-Public Use
  Company Number: ES-PFIZER INC-2008009148

PATIENT
  Age: 72 Year
  Sex: Male

DRUGS (13)
  1. ARTHROTEC [Suspect]
     Dosage: TEXT:100 MG/400 MCG
     Route: 048
     Dates: start: 20071001, end: 20071008
  2. ESPIDIFEN [Suspect]
     Dosage: DAILY DOSE:600MG
     Route: 048
     Dates: start: 20071008, end: 20071016
  3. LANTUS [Suspect]
     Route: 058
  4. OMEPRAZOLE [Suspect]
     Route: 048
  5. CAPOTEN [Suspect]
     Route: 048
     Dates: start: 20070927, end: 20070927
  6. ACETAMINOPHEN [Suspect]
     Route: 048
     Dates: start: 20070929, end: 20070930
  7. ENOXAPARIN SODIUM [Suspect]
     Route: 058
  8. LORAZEPAM [Suspect]
     Route: 048
  9. CEFTRIAXONE [Suspect]
     Indication: CELLULITIS
     Route: 042
     Dates: start: 20071008, end: 20071015
  10. METFORMIN HCL [Suspect]
     Route: 048
  11. TRAMADOL HCL [Suspect]
     Route: 048
     Dates: start: 20070929, end: 20070930
  12. GLIPIZIDE [Suspect]
     Route: 048
     Dates: start: 20070101, end: 20071011
  13. TARGOCID [Suspect]
     Indication: CELLULITIS
     Route: 042
     Dates: start: 20071008, end: 20071015

REACTIONS (1)
  - NEUTROPENIA [None]
